FAERS Safety Report 5150948-8 (Version None)
Quarter: 2006Q4

REPORT INFORMATION
  Report Type: 
  Country: None (occurrence: None)
  Receive Date: 20061115
  Receipt Date: 20061102
  Transmission Date: 20070319
  Serious: Yes (Other)
  Sender: FDA-Public Use
  Company Number: PHMT2006CA02085

PATIENT
  Sex: Female

DRUGS (1)
  1. DESFERAL [Suspect]

REACTIONS (2)
  - OCULAR TOXICITY [None]
  - OTOTOXICITY [None]
